FAERS Safety Report 6952021-2 (Version None)
Quarter: 2010Q3

REPORT INFORMATION
  Report Type: 
  Country: None (occurrence: None)
  Receive Date: 20100829
  Receipt Date: 20100419
  Transmission Date: 20110219
  Serious: No
  Sender: FDA-Public Use
  Company Number: US-ABBOTT-10P-163-0640280-00

PATIENT
  Age: 66 Year
  Sex: Male
  Weight: 72.64 kg

DRUGS (1)
  1. NIASPAN [Suspect]
     Indication: BLOOD TRIGLYCERIDES INCREASED
     Route: 048

REACTIONS (4)
  - ABDOMINAL PAIN [None]
  - DIZZINESS [None]
  - GAIT DISTURBANCE [None]
  - HEADACHE [None]
